FAERS Safety Report 9314838 (Version 1)
Quarter: 2013Q2

REPORT INFORMATION
  Report Type: Report from Study
  Country: CA (occurrence: CA)
  Receive Date: 20130529
  Receipt Date: 20130529
  Transmission Date: 20140414
  Serious: Yes (Other)
  Sender: FDA-Public Use
  Company Number: CA-ROCHE-1226049

PATIENT
  Sex: Male

DRUGS (7)
  1. RITUXAN [Suspect]
     Indication: RHEUMATOID ARTHRITIS
     Dosage: DAY 1 AND DAY 15
     Route: 042
     Dates: start: 20090325
  2. PREDNISONE [Concomitant]
  3. DIPHENHYDRAMINE HCL [Concomitant]
     Route: 048
     Dates: start: 20110421
  4. ACETAMINOPHEN [Concomitant]
     Route: 048
     Dates: start: 20110421
  5. METHYLPREDNISOLONE [Concomitant]
     Route: 042
     Dates: start: 20110421
  6. PANTOLOC [Concomitant]
  7. ARAVA [Concomitant]

REACTIONS (3)
  - Dyspepsia [Unknown]
  - Drug ineffective [Unknown]
  - Joint swelling [Recovering/Resolving]
